FAERS Safety Report 7358942-3 (Version None)
Quarter: 2011Q1

REPORT INFORMATION
  Report Type: 
  Country: None (occurrence: None)
  Receive Date: 20110317
  Receipt Date: 20110307
  Transmission Date: 20110831
  Serious: Yes (Other)
  Sender: FDA-Public Use
  Company Number: CA-JNJFOC-20110304270

PATIENT
  Sex: Female
  Weight: 73 kg

DRUGS (12)
  1. RESTORIL [Concomitant]
     Route: 065
  2. CODEINE [Concomitant]
     Dosage: PRN
     Route: 065
  3. DEMEROL [Concomitant]
     Dosage: PRN
     Route: 065
  4. GABAPENTIN [Concomitant]
     Route: 065
  5. FOLIC ACID [Concomitant]
     Route: 065
  6. METHOTREXATE [Concomitant]
     Route: 065
  7. TRAZODONE [Concomitant]
     Route: 065
  8. PREVACID [Concomitant]
     Route: 065
  9. DIOVAN [Concomitant]
     Route: 065
  10. REMICADE [Suspect]
     Indication: CROHN'S DISEASE
     Route: 042
  11. MULTIPLE VITAMIN [Concomitant]
     Route: 065
  12. REMICADE [Suspect]
     Route: 042

REACTIONS (3)
  - HYPERTENSION [None]
  - JOINT ARTHROPLASTY [None]
  - HEADACHE [None]
